FAERS Safety Report 10014609 (Version 3)
Quarter: 2014Q1

REPORT INFORMATION
  Report Type: Spontaneous
  Country: US (occurrence: US)
  Receive Date: 20140317
  Receipt Date: 20140319
  Transmission Date: 20141002
  Serious: Yes (Disabling, Other)
  Sender: FDA-Public Use
  Company Number: US-DRREDDYS-USA/USA/13/0033619

PATIENT
  Age: 72 Year
  Sex: Male
  Weight: 83.54 kg

DRUGS (7)
  1. LEVOFLOXACIN TABLETS 750 MG [Suspect]
     Indication: HALLUCINATION
     Dosage: 750 MG ONCE DAILY
     Route: 048
     Dates: start: 20130608
  2. LEVOFLOXACIN TABLETS 750 MG [Suspect]
     Indication: KIDNEY INFECTION
     Route: 048
     Dates: start: 201301
  3. LEVOFLOXACIN [Suspect]
     Indication: HALLUCINATION
     Route: 065
  4. LEVOFLOXACIN [Suspect]
     Indication: KIDNEY INFECTION
  5. LIPITOR [Concomitant]
     Indication: PRODUCT USED FOR UNKNOWN INDICATION
     Route: 065
  6. NEXIUM [Concomitant]
     Indication: PRODUCT USED FOR UNKNOWN INDICATION
     Route: 065
  7. LOW DOSE ASPIRIN [Concomitant]
     Indication: PRODUCT USED FOR UNKNOWN INDICATION
     Route: 065

REACTIONS (11)
  - Activities of daily living impaired [Not Recovered/Not Resolved]
  - Nerve injury [Not Recovered/Not Resolved]
  - Tendonitis [Not Recovered/Not Resolved]
  - Gait disturbance [Recovering/Resolving]
  - Arthralgia [Not Recovered/Not Resolved]
  - Pain in extremity [Not Recovered/Not Resolved]
  - Tendon pain [Not Recovered/Not Resolved]
  - Burning sensation [Not Recovered/Not Resolved]
  - Muscle spasms [Not Recovered/Not Resolved]
  - Joint injury [Not Recovered/Not Resolved]
  - Tendon rupture [Not Recovered/Not Resolved]
